FAERS Safety Report 16437946 (Version 1)
Quarter: 2019Q2

REPORT INFORMATION
  Report Type: Spontaneous
  Country: GB (occurrence: GB)
  Receive Date: 20190617
  Receipt Date: 20190617
  Transmission Date: 20190711
  Serious: Yes (Life-Threatening, Disabling)
  Sender: FDA-Public Use
  Company Number: GB-SUN PHARMACEUTICAL INDUSTRIES LTD-2019RR-210701

PATIENT
  Age: 53 Year
  Sex: Female
  Weight: 90 kg

DRUGS (5)
  1. CAPECITABINE. [Suspect]
     Active Substance: CAPECITABINE
     Indication: COLON CANCER
     Dosage: 1000 MILLIGRAM/SQ. METER, DAILY
     Route: 048
     Dates: start: 20070726, end: 20070809
  2. DEXAMETHASONE. [Concomitant]
     Active Substance: DEXAMETHASONE
     Indication: NAUSEA
     Dosage: 10 MILLIGRAM, UNK
     Route: 048
     Dates: start: 20070726, end: 20070728
  3. GRANISETRON [Concomitant]
     Active Substance: GRANISETRON
     Indication: NAUSEA
     Dosage: 1 MILLIGRAM, UNK
     Route: 048
     Dates: start: 20070726
  4. OXALIPLATIN. [Suspect]
     Active Substance: OXALIPLATIN
     Indication: COLON CANCER
     Dosage: 130 MILLIGRAM/SQ. METER, DAILY
     Route: 042
     Dates: start: 20070726, end: 20070726
  5. DOMPERIDONE [Concomitant]
     Active Substance: DOMPERIDONE
     Indication: NAUSEA
     Dosage: 20 MILLIGRAM, UNK
     Route: 048
     Dates: start: 20070726

REACTIONS (2)
  - Hemiparesis [Not Recovered/Not Resolved]
  - Thrombotic stroke [Not Recovered/Not Resolved]

NARRATIVE: CASE EVENT DATE: 20070817
